FAERS Safety Report 25372460 (Version 1)
Quarter: 2025Q2

REPORT INFORMATION
  Report Type: Report from Study
  Country: CA (occurrence: CA)
  Receive Date: 20250529
  Receipt Date: 20250529
  Transmission Date: 20250716
  Serious: Yes (Other)
  Sender: TAKEDA
  Company Number: CA-TAKEDA-2024TUS097697

PATIENT
  Age: 37 Year
  Sex: Female

DRUGS (11)
  1. VEDOLIZUMAB [Suspect]
     Active Substance: VEDOLIZUMAB
     Indication: Crohn^s disease
  2. VEDOLIZUMAB [Suspect]
     Active Substance: VEDOLIZUMAB
     Dosage: 300 MILLIGRAM, Q4WEEKS
     Dates: start: 20241209
  3. PREDNISONE [Concomitant]
     Active Substance: PREDNISONE
  4. VENLAFAXINE [Concomitant]
     Active Substance: VENLAFAXINE HYDROCHLORIDE
  5. VENLAFAXINE [Concomitant]
     Active Substance: VENLAFAXINE HYDROCHLORIDE
  6. ARIPIPRAZOLE [Concomitant]
     Active Substance: ARIPIPRAZOLE
  7. ARIPIPRAZOLE [Concomitant]
     Active Substance: ARIPIPRAZOLE
  8. LANSOPRAZOLE [Concomitant]
     Active Substance: LANSOPRAZOLE
  9. SULFATRIM [Concomitant]
     Active Substance: SULFAMETHOXAZOLE\TRIMETHOPRIM
  10. CLONAZEPAM [Concomitant]
     Active Substance: CLONAZEPAM
  11. D3 vitamin [Concomitant]

REACTIONS (8)
  - Hepatic cirrhosis [Unknown]
  - Malaise [Unknown]
  - Frequent bowel movements [Unknown]
  - Diarrhoea [Unknown]
  - Abdominal hernia [Unknown]
  - Abdominal pain lower [Unknown]
  - Mucous stools [Unknown]
  - Off label use [Unknown]

NARRATIVE: CASE EVENT DATE: 20241209
